FAERS Safety Report 4706815-4 (Version None)
Quarter: 2005Q3

REPORT INFORMATION
  Report Type: 
  Country: None (occurrence: None)
  Receive Date: 20050705
  Receipt Date: 20050520
  Transmission Date: 20060218
  Serious: Yes (Death)
  Sender: FDA-Public Use
  Company Number: PAR_0106_2005

PATIENT
  Age: 31 Year

DRUGS (3)
  1. IBUPROFEN [Suspect]
     Dosage: DF IH
  2. VERAPAMIL [Suspect]
     Dosage: DF 1H
  3. TRAZODONE HCL [Suspect]
     Dosage: DF 1H

REACTIONS (3)
  - COMPLETED SUICIDE [None]
  - INTENTIONAL MISUSE [None]
  - MULTIPLE DRUG OVERDOSE [None]
